FAERS Safety Report 21613570 (Version 1)
Quarter: 2022Q4

REPORT INFORMATION
  Report Type: Spontaneous
  Country: US (occurrence: US)
  Receive Date: 20221118
  Receipt Date: 20221118
  Transmission Date: 20230113
  Serious: No
  Sender: FDA-Public Use
  Company Number: ALC2022US004098

PATIENT
  Age: 64 Year
  Sex: Female
  Weight: 90.703 kg

DRUGS (1)
  1. EYSUVIS [Suspect]
     Active Substance: LOTEPREDNOL ETABONATE
     Indication: Dry eye
     Dosage: 1 DROP, 3X/DAY IN BOTH EYES
     Route: 047
     Dates: start: 20220713

REACTIONS (3)
  - Exposure via skin contact [Unknown]
  - Off label use [Not Recovered/Not Resolved]
  - Product delivery mechanism issue [Unknown]

NARRATIVE: CASE EVENT DATE: 20220701
